FAERS Safety Report 16146012 (Version 1)
Quarter: 2019Q2

REPORT INFORMATION
  Report Type: Spontaneous
  Country: US (occurrence: US)
  Receive Date: 20190227
  Receipt Date: 20190227
  Transmission Date: 20190711
  Serious: Yes (Hospitalization)
  Sender: FDA-Public Use
  Company Number: None

PATIENT
  Age: 51 Year
  Sex: Female
  Weight: 101.6 kg

DRUGS (10)
  1. IBUPROFEN. [Concomitant]
     Active Substance: IBUPROFEN
  2. PRAMIPEXOLE. [Concomitant]
     Active Substance: PRAMIPEXOLE
  3. MORPHINE [Concomitant]
     Active Substance: MORPHINE
  4. RANITIDINE. [Concomitant]
     Active Substance: RANITIDINE
  5. BEVACIZUMAB (RHUMAB VEGF( (704865) [Suspect]
     Active Substance: BEVACIZUMAB
     Dates: end: 20190124
  6. BUPROPION XL [Concomitant]
     Active Substance: BUPROPION
  7. OXYCODONE [Concomitant]
     Active Substance: OXYCODONE
  8. DOXIL [Suspect]
     Active Substance: DOXORUBICIN HYDROCHLORIDE
     Dosage: ?          OTHER DOSE:86.4MG;?
     Dates: end: 20190110
  9. CETIRIZINE [Concomitant]
     Active Substance: CETIRIZINE HYDROCHLORIDE
  10. ONDASETRON [Concomitant]
     Active Substance: ONDANSETRON

REACTIONS (1)
  - Small intestinal obstruction [None]

NARRATIVE: CASE EVENT DATE: 20190217
